FAERS Safety Report 8387646 (Version 4)
Quarter: 2012Q4

REPORT INFORMATION
  Report Type: 
  Country: US (occurrence: US)
  Receive Date: 20120202
  Receipt Date: 20121004
  Transmission Date: 20130627
  Serious: Yes (Hospitalization, Other)
  Sender: FDA-Public Use
  Company Number: PHEH2011US012988

PATIENT
  Age: 36 None
  Sex: Female

DRUGS (20)
  1. GILENYA [Suspect]
     Indication: MULTIPLE SCLEROSIS
     Dosage: 0.5 mg, QD
     Route: 048
     Dates: start: 20111026
  2. ATIVAN [Concomitant]
     Dosage: 1 DF, TID
     Route: 048
  3. TRAZODONE [Concomitant]
     Dosage: 75 mg, QHS
     Route: 048
  4. LYRICA [Concomitant]
     Dosage: 1 DF, TID
     Route: 048
  5. MELOXICAM [Concomitant]
     Dosage: 1 DF, BID
     Route: 048
  6. BACLOFEN [Concomitant]
  7. ZOLPIDEM [Concomitant]
     Indication: INSOMNIA
     Dosage: 10 mg, UNK
     Route: 048
  8. VENTOLIN                           /00139501/ [Concomitant]
  9. WARFARIN [Concomitant]
     Dosage: 5mg orally daily for 10 days
     Route: 048
  10. LOVENOX [Concomitant]
     Dosage: 70 mg, BID
     Route: 058
  11. DILAUDID [Concomitant]
     Dosage: 2 mg, PRN, for 10 days
     Route: 048
  12. COLAC [Concomitant]
     Dosage: 100 mg orally daily for 10 days
     Route: 048
  13. ZOFRAN [Concomitant]
     Dosage: 4 mg orally q 8 PRN for  10 days
  14. GEODON [Concomitant]
     Dosage: 20 mg orally daily
     Route: 048
  15. NORVASC [Concomitant]
     Dosage: 5mg, 0ral daily
     Route: 048
  16. OMEPRAZOLE [Concomitant]
     Dosage: 40 mg, BID
  17. REMERON [Concomitant]
     Dosage: 30 mg oral hs
     Route: 048
  18. SERTRALINE [Concomitant]
     Dosage: 200 mg orally hs
     Route: 048
  19. TOPIRAMATE [Concomitant]
     Dosage: 100 mg oral BID
  20. FINGOLIMOD [Concomitant]
     Dosage: 0.5 mg orally daily
     Route: 048

REACTIONS (17)
  - Pulmonary embolism [Recovering/Resolving]
  - Chest discomfort [Recovered/Resolved]
  - Dyspnoea [Recovered/Resolved]
  - Palpitations [Recovered/Resolved]
  - Thrombosis [Recovering/Resolving]
  - Pleural effusion [Recovered/Resolved]
  - Pulmonary artery dilatation [Recovered/Resolved]
  - Pulmonary infarction [Recovered/Resolved]
  - Multiple sclerosis relapse [Recovering/Resolving]
  - Gait disturbance [Recovering/Resolving]
  - Asthenia [Recovering/Resolving]
  - Exercise tolerance decreased [Recovering/Resolving]
  - Activities of daily living impaired [Recovering/Resolving]
  - Iron deficiency anaemia [Recovering/Resolving]
  - Hypokalaemia [Recovered/Resolved]
  - Vision blurred [Recovering/Resolving]
  - Headache [Recovering/Resolving]
